FAERS Safety Report 23980955 (Version 2)
Quarter: 2024Q2

REPORT INFORMATION
  Report Type: Report from Study
  Country: FR (occurrence: FR)
  Receive Date: 20240617
  Receipt Date: 20240621
  Transmission Date: 20240716
  Serious: Yes (Death, Other)
  Sender: FDA-Public Use
  Company Number: FR-TAKEDA-2024TUS059414

PATIENT

DRUGS (1)
  1. MARIBAVIR [Suspect]
     Active Substance: MARIBAVIR
     Indication: Cytomegalovirus infection
     Dosage: 200 MILLIGRAM
     Route: 065
     Dates: start: 20240528

REACTIONS (3)
  - Septic shock [Fatal]
  - Klebsiella sepsis [Fatal]
  - Disease progression [Unknown]

NARRATIVE: CASE EVENT DATE: 20240529
